FAERS Safety Report 25690455 (Version 1)
Quarter: 2025Q3

REPORT INFORMATION
  Report Type: Spontaneous
  Country: US (occurrence: None)
  Receive Date: 20250815
  Receipt Date: 20250815
  Transmission Date: 20251020
  Serious: Yes (Hospitalization, Other)
  Sender: FDA-CTU
  Company Number: None

PATIENT
  Age: 60 Year
  Sex: Male
  Weight: 81 kg

DRUGS (11)
  1. RECLAST [Suspect]
     Active Substance: ZOLEDRONIC ACID
     Indication: Osteopetrosis
     Route: 042
     Dates: start: 20250624, end: 20250624
  2. AUVELITY [Concomitant]
     Active Substance: BUPROPION HYDROCHLORIDE\DEXTROMETHORPHAN HYDROBROMIDE
  3. PREDNISONE [Concomitant]
     Active Substance: PREDNISONE
  4. ALPHA LIPOIC ACID [Concomitant]
     Active Substance: .ALPHA.-LIPOIC ACID
  5. Ascorbic acid SR [Concomitant]
  6. Blue-Green Algae (Spirulina) [Concomitant]
  7. CALCIUM CITRATE [Concomitant]
     Active Substance: CALCIUM CITRATE
  8. CALCIUM [Concomitant]
     Active Substance: CALCIUM
  9. Cholecalciferol (VITAMIN D-3) [Concomitant]
  10. DOCONEXENT\ ICOSAPENT\ FISH OIL\ OMEGA-3 FATTY ACIDS [Concomitant]
     Active Substance: DOCONEXENT\ ICOSAPENT\ FISH OIL\ OMEGA-3 FATTY ACIDS
  11. POTASSIUM GLUCONATE [Concomitant]
     Active Substance: POTASSIUM GLUCONATE

REACTIONS (12)
  - Eye swelling [None]
  - Eye pain [None]
  - Visual impairment [None]
  - Optic neuritis [None]
  - Photopsia [None]
  - Ocular hyperaemia [None]
  - Parophthalmia [None]
  - Eyelid oedema [None]
  - Blindness [None]
  - Optic nerve disorder [None]
  - Nasal disorder [None]
  - Colour vision tests abnormal [None]

NARRATIVE: CASE EVENT DATE: 20250702
